FAERS Safety Report 5030275-X (Version None)
Quarter: 2006Q2

REPORT INFORMATION
  Report Type: 
  Country: None (occurrence: None)
  Receive Date: 20060614
  Receipt Date: 20060530
  Transmission Date: 20061013
  Serious: Yes (Hospitalization)
  Sender: FDA-Public Use
  Company Number: 220001M06DEU

PATIENT
  Sex: Male
  Weight: 20 kg

DRUGS (1)
  1. SAIZEN [Suspect]
     Indication: GROWTH HORMONE DEFICIENCY
     Dosage: 0.6, 1 IN 1 DAY, SUBCUTANEOUS
     Route: 058
     Dates: start: 20041005, end: 20051004

REACTIONS (8)
  - CAFE AU LAIT SPOTS [None]
  - CEREBELLAR SYNDROME [None]
  - DYSKINESIA [None]
  - INSOMNIA [None]
  - MEDULLOBLASTOMA [None]
  - MICROCEPHALY [None]
  - PAPILLOEDEMA [None]
  - VERTIGO [None]
